FAERS Safety Report 5646363-0 (Version None)
Quarter: 2008Q1

REPORT INFORMATION
  Report Type: 
  Country: None (occurrence: None)
  Receive Date: 20080303
  Receipt Date: 20080228
  Transmission Date: 20080703
  Serious: Yes (Hospitalization)
  Sender: FDA-Public Use
  Company Number: US-ELI_LILLY_AND_COMPANY-US200802006695

PATIENT
  Age: 86 Year
  Sex: Female

DRUGS (4)
  1. ZYPREXA [Suspect]
     Indication: SCHIZOPHRENIA
     Dosage: 10 MG, UNK
     Dates: start: 20000101
  2. ATENOLOL [Concomitant]
  3. SYNTHROID [Concomitant]
  4. LASIX [Concomitant]

REACTIONS (2)
  - CATATONIA [None]
  - DRUG EFFECT DECREASED [None]
